FAERS Safety Report 13284850 (Version 1)
Quarter: 2017Q1

REPORT INFORMATION
  Report Type: Spontaneous
  Country: RU (occurrence: RU)
  Receive Date: 20170301
  Receipt Date: 20170301
  Transmission Date: 20170428
  Serious: Yes (Other)
  Sender: FDA-Public Use
  Company Number: RU-BAYER-2016-238656

PATIENT
  Age: 44 Year
  Sex: Female

DRUGS (3)
  1. QLAIRA [Suspect]
     Active Substance: DIENOGEST\ESTRADIOL VALERATE
     Indication: CONTRACEPTION
     Dosage: UNK
     Route: 048
     Dates: start: 2009
  2. QLAIRA [Suspect]
     Active Substance: DIENOGEST\ESTRADIOL VALERATE
     Indication: MENORRHAGIA
     Dosage: UNK
  3. NORCOLUT [Suspect]
     Active Substance: NORETHINDRONE
     Dosage: 1 DF, BID
     Route: 048

REACTIONS (4)
  - Uterine polyp [None]
  - Uterine enlargement [None]
  - Metrorrhagia [None]
  - Abdominal pain lower [None]

NARRATIVE: CASE EVENT DATE: 20161211
